FAERS Safety Report 13579100 (Version 1)
Quarter: 2017Q2

REPORT INFORMATION
  Report Type: Report from Study
  Country: None (occurrence: CO)
  Receive Date: 20170524
  Receipt Date: 20170524
  Transmission Date: 20170830
  Serious: Yes (Death)
  Sender: FDA-Public Use
  Company Number: CO-ABBVIE-17K-036-1985065-00

PATIENT
  Age: 48 Year
  Sex: Male
  Weight: 56 kg

DRUGS (1)
  1. HUMIRA [Suspect]
     Active Substance: ADALIMUMAB
     Indication: PSORIASIS
     Route: 058
     Dates: start: 20141002, end: 20170313

REACTIONS (3)
  - Weight decreased [Fatal]
  - Impaired quality of life [Fatal]
  - Malaise [Fatal]

NARRATIVE: CASE EVENT DATE: 20170115
